FAERS Safety Report 5209684-1 (Version None)
Quarter: 2007Q1

REPORT INFORMATION
  Report Type: 
  Country: None (occurrence: None)
  Receive Date: 20070111
  Receipt Date: 20061229
  Transmission Date: 20070707
  Serious: Yes (Hospitalization)
  Sender: FDA-Public Use
  Company Number: US-CVT-062471

PATIENT
  Age: 52 Year
  Sex: Male
  Weight: 89 kg

DRUGS (11)
  1. RANEXA [Suspect]
     Indication: ANGINA PECTORIS
     Dosage: 500 MG, BID, ORAL
     Route: 048
     Dates: start: 20061227, end: 20061228
  2. COUMADIN [Concomitant]
  3. EFFEXOR /01233801/ (VENLAFAXINE) [Concomitant]
  4. FLOMAX  /00889901/ (MORNIFLUMATE) [Concomitant]
  5. DIGOXIN  /00017701/ (DIGOXIN) [Concomitant]
  6. BUMEX [Concomitant]
  7. ALSEROXYLON (ALSEROXYLON) [Concomitant]
  8. TRICOR [Concomitant]
  9. LIPITRO   /01326101/ (ATORVASTATIN) [Concomitant]
  10. ALDACTONE [Concomitant]
  11. ASPIRIN [Concomitant]

REACTIONS (1)
  - CEREBROVASCULAR ACCIDENT [None]
